FAERS Safety Report 7607127-1 (Version None)
Quarter: 2011Q3

REPORT INFORMATION
  Report Type: 
  Country: None (occurrence: None)
  Receive Date: 20110713
  Receipt Date: 20110628
  Transmission Date: 20111222
  Serious: No
  Sender: FDA-Public Use
  Company Number: US-B.I. PHARMACEUTICALS,INC./RIDGEFIELD-2011-BP-16496BP

PATIENT
  Age: 42 Year
  Sex: Female

DRUGS (4)
  1. PRADAXA [Suspect]
     Indication: CAROTID ARTERY DISSECTION
     Dosage: 300 MG
     Route: 048
     Dates: start: 20110101
  2. LOVAZA [Concomitant]
  3. ARMOUR [Concomitant]
     Indication: HYPOTHYROIDISM
  4. TOPAMAX [Concomitant]
     Indication: HEADACHE

REACTIONS (1)
  - MUSCULOSKELETAL PAIN [None]
